FAERS Safety Report 23396727 (Version 4)
Quarter: 2024Q1

REPORT INFORMATION
  Report Type: Spontaneous
  Country: FR (occurrence: FR)
  Receive Date: 20240112
  Receipt Date: 20240206
  Transmission Date: 20240410
  Serious: Yes (Death, Other)
  Sender: FDA-Public Use
  Company Number: FR-002147023-NVSC2024FR006114

PATIENT
  Sex: Female

DRUGS (3)
  1. LUTATHERA [Suspect]
     Active Substance: LUTETIUM OXODOTREOTIDE LU-177
     Indication: Small intestine neuroendocrine tumour
     Dosage: 7382 MBQ, ONCE/SINGLE
     Route: 042
     Dates: start: 20230711, end: 20230711
  2. LUTATHERA [Suspect]
     Active Substance: LUTETIUM OXODOTREOTIDE LU-177
     Dosage: 3737 MBQ, ONCE/SINGLE
     Route: 042
     Dates: start: 20231017, end: 20231017
  3. LUTATHERA [Suspect]
     Active Substance: LUTETIUM OXODOTREOTIDE LU-177
     Dosage: UNK (RECEIVED 2 DOSE SEQUENCES)
     Route: 065

REACTIONS (4)
  - Cardiogenic shock [Fatal]
  - Cardiac tamponade [Fatal]
  - Intestinal ischaemia [Fatal]
  - Thrombocytopenia [Unknown]

NARRATIVE: CASE EVENT DATE: 20231205
